FAERS Safety Report 8770960 (Version 1)
Quarter: 2012Q4

REPORT INFORMATION
  Report Type: 
  Country: CN (occurrence: CN)
  Receive Date: 20120906
  Receipt Date: 20120906
  Transmission Date: 20130627
  Serious: Yes (Hospitalization)
  Sender: FDA-Public Use
  Company Number: CN-JNJFOC-20120814342

PATIENT
  Age: 32 Year
  Sex: Female

DRUGS (1)
  1. TYLENOL [Suspect]
     Indication: PRODUCT USED FOR UNKNOWN INDICATION
     Route: 048

REACTIONS (6)
  - Toxicity to various agents [Recovered/Resolved]
  - Haemoglobin decreased [None]
  - Lymphocyte count increased [None]
  - Platelet count decreased [None]
  - Blood sodium decreased [None]
  - Blood chloride decreased [None]
